FAERS Safety Report 21187246 (Version 2)
Quarter: 2022Q3

REPORT INFORMATION
  Report Type: Spontaneous
  Country: US (occurrence: US)
  Receive Date: 20220808
  Receipt Date: 20220817
  Transmission Date: 20221027
  Serious: No
  Sender: FDA-Public Use
  Company Number: US-ELI_LILLY_AND_COMPANY-US202208003081

PATIENT
  Sex: Female

DRUGS (7)
  1. MOUNJARO [Suspect]
     Active Substance: TIRZEPATIDE
     Indication: Glucose tolerance impaired
     Dosage: 2.5 MG, UNKNOWN
     Dates: start: 20220626
  2. MOUNJARO [Suspect]
     Active Substance: TIRZEPATIDE
     Indication: Glycosylated haemoglobin increased
  3. MOUNJARO [Suspect]
     Active Substance: TIRZEPATIDE
     Indication: Overweight
  4. MOUNJARO [Interacting]
     Active Substance: TIRZEPATIDE
     Indication: Glucose tolerance impaired
     Dosage: 5 MG, UNKNOWN
     Route: 065
     Dates: start: 20220724, end: 20220724
  5. MOUNJARO [Interacting]
     Active Substance: TIRZEPATIDE
     Indication: Glycosylated haemoglobin increased
  6. MOUNJARO [Interacting]
     Active Substance: TIRZEPATIDE
     Indication: Overweight
  7. XYWAV [Interacting]
     Active Substance: CALCIUM OXYBATE\MAGNESIUM OXYBATE\POTASSIUM OXYBATE\SODIUM OXYBATE
     Indication: Narcolepsy
     Dosage: UNK, UNKNOWN
     Route: 065
     Dates: start: 2016

REACTIONS (8)
  - Insomnia [Recovered/Resolved]
  - Intentional dose omission [Unknown]
  - Somnolence [Recovered/Resolved]
  - Feeling abnormal [Unknown]
  - Off label use [Unknown]
  - Drug interaction [Unknown]
  - Weight decreased [Unknown]
  - Malaise [Unknown]
